FAERS Safety Report 8465219-1 (Version None)
Quarter: 2012Q2

REPORT INFORMATION
  Report Type: 
  Country: None (occurrence: None)
  Receive Date: 20120626
  Receipt Date: 20120620
  Transmission Date: 20120825
  Serious: No
  Sender: FDA-Public Use
  Company Number: PHHY2012CH052857

PATIENT
  Sex: Male

DRUGS (2)
  1. PREDNISONE [Concomitant]
  2. ILARIS [Suspect]
     Indication: GOUTY ARTHRITIS

REACTIONS (3)
  - FATIGUE [None]
  - ADRENAL DISORDER [None]
  - HYPOTENSION [None]
